FAERS Safety Report 7029571-6 (Version None)
Quarter: 2010Q4

REPORT INFORMATION
  Report Type: 
  Country: None (occurrence: None)
  Receive Date: 20101005
  Receipt Date: 20100928
  Transmission Date: 20110411
  Serious: Yes (Other)
  Sender: FDA-Public Use
  Company Number: US-AMGEN-QUU432744

PATIENT
  Sex: Female
  Weight: 1.93 kg

DRUGS (1)
  1. ENBREL [Suspect]
     Route: 064
     Dates: start: 20080101, end: 20091001

REACTIONS (7)
  - CARDIAC DISORDER [None]
  - CEREBRAL INFARCTION [None]
  - HYPERSENSITIVITY [None]
  - PREMATURE BABY [None]
  - RASH GENERALISED [None]
  - RENAL APLASIA [None]
  - VESICOURETERIC REFLUX [None]
